FAERS Safety Report 14482043 (Version 1)
Quarter: 2018Q1

REPORT INFORMATION
  Report Type: Spontaneous
  Country: US (occurrence: US)
  Receive Date: 20180202
  Receipt Date: 20180202
  Transmission Date: 20180509
  Serious: Yes (Other)
  Sender: FDA-Public Use
  Company Number: PHHY2017US198227

PATIENT
  Sex: Male

DRUGS (1)
  1. CARBIDOPA,ENTACAPONE,LEVODOPA [Suspect]
     Active Substance: CARBIDOPA\ENTACAPONE\LEVODOPA
     Indication: PRODUCT USED FOR UNKNOWN INDICATION
     Dosage: UNK
     Route: 048

REACTIONS (9)
  - Fall [Unknown]
  - Hallucination [Unknown]
  - Head injury [Unknown]
  - Incontinence [Unknown]
  - Delusion [Unknown]
  - Back injury [Unknown]
  - Fracture [Unknown]
  - Hypersomnia [Unknown]
  - Confusional state [Unknown]
